FAERS Safety Report 5405974-8 (Version None)
Quarter: 2007Q3

REPORT INFORMATION
  Report Type: 
  Country: None (occurrence: None)
  Receive Date: 20070806
  Receipt Date: 20070727
  Transmission Date: 20080115
  Serious: Yes (Hospitalization)
  Sender: FDA-Public Use
  Company Number: FRWYE081025JUL07

PATIENT
  Age: 3 Year
  Sex: Male

DRUGS (1)
  1. ADVIL [Suspect]
     Dosage: ONE INTAKE OF AN UNKNOWN DOSE
     Route: 048
     Dates: start: 20070722, end: 20070722

REACTIONS (3)
  - ABNORMAL BEHAVIOUR [None]
  - MOOD ALTERED [None]
  - TREMOR [None]
